FAERS Safety Report 7016572-7 (Version None)
Quarter: 2010Q3

REPORT INFORMATION
  Report Type: 
  Country: None (occurrence: None)
  Receive Date: 20100927
  Receipt Date: 20100916
  Transmission Date: 20110219
  Serious: Yes (Hospitalization)
  Sender: FDA-Public Use
  Company Number: A0883049A

PATIENT
  Age: 76 Year
  Sex: Female
  Weight: 87.3 kg

DRUGS (4)
  1. MELPHALAN HYDROCHLORIDE [Suspect]
     Indication: MULTIPLE MYELOMA
     Route: 048
     Dates: start: 20100729, end: 20100801
  2. PREDNISONE [Suspect]
     Indication: MULTIPLE MYELOMA
     Route: 048
     Dates: start: 20100729, end: 20100801
  3. THALIDOMIDE [Suspect]
     Indication: MULTIPLE MYELOMA
     Dosage: 50MG PER DAY
     Route: 048
     Dates: start: 20100701, end: 20100816
  4. ZOMETA [Suspect]
     Indication: MULTIPLE MYELOMA
     Route: 042
     Dates: start: 20100513, end: 20100812

REACTIONS (4)
  - BLOOD CREATININE INCREASED [None]
  - FATIGUE [None]
  - RENAL FAILURE [None]
  - STAPHYLOCOCCAL INFECTION [None]
